FAERS Safety Report 11714567 (Version 1)
Quarter: 2015Q4

REPORT INFORMATION
  Report Type: Spontaneous
  Country: US (occurrence: US)
  Receive Date: 20151109
  Receipt Date: 20151109
  Transmission Date: 20160304
  Serious: No
  Sender: FDA-Public Use
  Company Number: US-BAYER-2015-463801

PATIENT
  Age: 55 Year
  Sex: Female
  Weight: 82.99 kg

DRUGS (2)
  1. MIRALAX [Suspect]
     Active Substance: POLYETHYLENE GLYCOL 3350
     Indication: CONSTIPATION
     Dosage: 1 DF, QD
     Route: 048
     Dates: start: 2000
  2. LINZESS [Concomitant]
     Active Substance: LINACLOTIDE

REACTIONS (3)
  - Pain [None]
  - Product use issue [None]
  - Diarrhoea [None]

NARRATIVE: CASE EVENT DATE: 2000
